FAERS Safety Report 5205471-9 (Version None)
Quarter: 2006Q4

REPORT INFORMATION
  Report Type: 
  Country: None (occurrence: None)
  Receive Date: 20061027
  Receipt Date: 20060215
  Transmission Date: 20070319
  Serious: Yes (Hospitalization, Other)
  Sender: FDA-Public Use
  Company Number: HQWYE137126AUG05

PATIENT
  Age: 58 Year
  Sex: Female
  Weight: 90.8 kg

DRUGS (20)
  1. PREMARIN [Suspect]
  2. ESTRACE [Suspect]
  3. PREMARIN [Suspect]
  4. MAXZIDE [Concomitant]
  5. TRIAMTERENE (TRIAMTERENE) [Concomitant]
  6. TRIAMTERENE AND HYDROCHLOROTHIAZID (HYDROCHLOROTHIAZIDE/TRIAMTERENE) [Concomitant]
  7. XANAX [Concomitant]
  8. ELAVIL [Concomitant]
  9. COMPAZINE [Concomitant]
  10. FUROSEMIDE [Concomitant]
  11. GABAPENTIN [Concomitant]
  12. HYDROCODONE BITARTRATE [Concomitant]
  13. LORAZEPAM [Concomitant]
  14. PRILOSEC [Concomitant]
  15. SINGULAIR [Concomitant]
  16. SUCRALFATE [Concomitant]
  17. SYNTHROID [Concomitant]
  18. ZOLOFT [Concomitant]
  19. ZITHROMAX [Concomitant]
  20. .. [Concomitant]

REACTIONS (1)
  - OVARIAN CANCER METASTATIC [None]
